FAERS Safety Report 5129739-X (Version None)
Quarter: 2006Q4

REPORT INFORMATION
  Report Type: 
  Country: None (occurrence: None)
  Receive Date: 20061012
  Receipt Date: 20061002
  Transmission Date: 20070319
  Serious: Yes (Death)
  Sender: FDA-Public Use
  Company Number: 2006000604

PATIENT
  Age: 25 Year

DRUGS (2)
  1. METHADONE HYDROCHLORIDE [Suspect]
     Dosage: ORAL
     Route: 048
  2. ZIPRASIDONE [Suspect]
     Dosage: ORAL
     Route: 048

REACTIONS (1)
  - DEATH [None]
